FAERS Safety Report 6188751-2 (Version None)
Quarter: 2009Q2

REPORT INFORMATION
  Report Type: 
  Country: None (occurrence: None)
  Receive Date: 20090513
  Receipt Date: 20090512
  Transmission Date: 20091009
  Serious: Yes (Other)
  Sender: FDA-Public Use
  Company Number: US-RB-012216-09

PATIENT
  Age: 44 Year
  Sex: Female

DRUGS (11)
  1. SUBOXONE [Suspect]
     Indication: PAIN
     Route: 060
     Dates: start: 20090213, end: 20090213
  2. SUBOXONE [Suspect]
     Route: 060
     Dates: start: 20090214, end: 20090317
  3. ATIVAN [Concomitant]
     Indication: ANXIETY
     Route: 048
     Dates: end: 20090317
  4. VALIUM [Concomitant]
     Indication: MUSCLE SPASMS
     Route: 048
     Dates: end: 20090317
  5. ARICEPT [Concomitant]
     Dosage: UNKNOWN DOSE
     Route: 065
     Dates: end: 20090304
  6. LEVOTHROID [Concomitant]
     Indication: HYPOTHYROIDISM
     Route: 048
  7. PREMARIN [Concomitant]
     Indication: HORMONE REPLACEMENT THERAPY
     Route: 065
  8. BUSPAR [Concomitant]
     Indication: DEPRESSION
     Route: 048
  9. CYMBALTA [Concomitant]
     Indication: DEPRESSION
     Route: 048
  10. LYRICA [Concomitant]
     Indication: FIBROMYALGIA
     Route: 048
  11. LEVOXYL [Concomitant]
     Indication: HYPOTHYROIDISM
     Route: 048

REACTIONS (5)
  - CONSTIPATION [None]
  - DRUG WITHDRAWAL SYNDROME [None]
  - HALLUCINATION, VISUAL [None]
  - JOINT SWELLING [None]
  - TREMOR [None]
